FAERS Safety Report 5426249-7 (Version None)
Quarter: 2007Q3

REPORT INFORMATION
  Report Type: 
  Country: None (occurrence: None)
  Receive Date: 20070827
  Receipt Date: 20070816
  Transmission Date: 20080115
  Serious: Yes (Other)
  Sender: FDA-Public Use
  Company Number: CH-ASTRAZENECA-2007PK01766

PATIENT
  Age: 33 Year
  Sex: Female

DRUGS (3)
  1. TENORMIN [Suspect]
     Indication: PREGNANCY INDUCED HYPERTENSION
     Route: 048
     Dates: start: 20060902, end: 20061002
  2. DEPAKENE [Concomitant]
     Indication: EPILEPSY
     Dosage: 145/333 MG TID
     Route: 048
     Dates: start: 20060117, end: 20061002
  3. LAMICTAL [Concomitant]
     Indication: EPILEPSY
     Route: 048
     Dates: start: 20060117, end: 20061002

REACTIONS (4)
  - ASSISTED DELIVERY [None]
  - BRADYCARDIA FOETAL [None]
  - DRUG EXPOSURE DURING PREGNANCY [None]
  - THROMBOCYTOPENIA [None]
